FAERS Safety Report 6734087-8 (Version None)
Quarter: 2010Q2

REPORT INFORMATION
  Report Type: 
  Country: None (occurrence: None)
  Receive Date: 20100520
  Receipt Date: 20100513
  Transmission Date: 20101027
  Serious: Yes (Death, Hospitalization)
  Sender: FDA-Public Use
  Company Number: JP-MERCK-1004USA04287

PATIENT
  Age: 84 Year
  Sex: Male

DRUGS (12)
  1. JANUVIA [Suspect]
     Indication: DIABETES MELLITUS
     Route: 048
     Dates: start: 20100322
  2. AMLODIPINE [Concomitant]
     Dosage: DAILY DOSAGE UNKNOWN
     Route: 048
     Dates: start: 20100301
  3. ASPIRIN [Concomitant]
     Dosage: DAILY DOSAGE UNKNOWN
     Route: 048
     Dates: start: 20090501
  4. MAINTATE [Concomitant]
     Dosage: DAILY DOSAGE UNKNOWN
     Route: 048
     Dates: start: 20090501
  5. LEXOTAN [Concomitant]
     Dosage: DAILY DOSAGE UNKNOWN
     Route: 048
     Dates: start: 20090501, end: 20100401
  6. PROSTAL [Concomitant]
     Dosage: DAILY DOSAGE UNKNOWN
     Route: 048
     Dates: start: 20090501
  7. ARICEPT [Concomitant]
     Dosage: DAILY DOSAGE UNKNOWN
     Route: 048
     Dates: start: 20090501
  8. ARICEPT [Concomitant]
     Dosage: DAILY DOSAGE UNKNOWN
     Route: 048
     Dates: start: 20100401, end: 20100401
  9. TOFRANIL [Concomitant]
     Dosage: DAILY DOSAGE UNKNOWN
     Route: 048
     Dates: start: 20100416, end: 20100416
  10. MAGLAX [Concomitant]
     Dosage: DAILY DOSAGE UNKNOWN
     Route: 048
     Dates: start: 20090701
  11. PANTETHINE [Concomitant]
     Dosage: DAILY DOSAGE UNKNOWN
     Route: 048
     Dates: start: 20100201
  12. ACTOS [Concomitant]
     Dosage: DAILY DOSAGE UNKNOWN
     Route: 048
     Dates: start: 20090501

REACTIONS (2)
  - DEATH [None]
  - PULMONARY OEDEMA [None]
